FAERS Safety Report 25396570 (Version 1)
Quarter: 2025Q2

REPORT INFORMATION
  Report Type: Report from Study
  Country: IN (occurrence: IN)
  Receive Date: 20250604
  Receipt Date: 20250604
  Transmission Date: 20250717
  Serious: Yes (Other)
  Sender: NOVARTIS
  Company Number: IN-002147023-NVSC2025IN052678

PATIENT
  Sex: Male

DRUGS (4)
  1. MYFORTIC [Suspect]
     Active Substance: MYCOPHENOLATE SODIUM
     Indication: Renal transplant
     Dosage: 360 MG, TID
     Route: 048
  2. MYFORTIC [Suspect]
     Active Substance: MYCOPHENOLATE SODIUM
     Dosage: 360 MG, QD
     Route: 048
  3. TACROLIMUS [Suspect]
     Active Substance: TACROLIMUS
     Indication: Renal transplant
     Route: 048
  4. TACROLIMUS [Suspect]
     Active Substance: TACROLIMUS
     Dosage: 2.5 MG, BID
     Route: 048

REACTIONS (6)
  - Leukopenia [Unknown]
  - Blood pressure increased [Unknown]
  - Haemoglobin decreased [Unknown]
  - Blood uric acid abnormal [Unknown]
  - Blood triglycerides abnormal [Unknown]
  - Off label use [Unknown]
